FAERS Safety Report 5744271-8 (Version None)
Quarter: 2008Q2

REPORT INFORMATION
  Report Type: 
  Country: None (occurrence: None)
  Receive Date: 20080520
  Receipt Date: 20080513
  Transmission Date: 20081010
  Serious: Yes (Hospitalization)
  Sender: FDA-Public Use
  Company Number: CM-MERCK-0805USA03337

PATIENT
  Age: 52 Year
  Sex: Male

DRUGS (1)
  1. STROMECTOL [Suspect]
     Indication: ONCHOCERCIASIS
     Route: 048
     Dates: start: 20080508, end: 20080508

REACTIONS (8)
  - ASTHENIA [None]
  - COMA [None]
  - DISORIENTATION [None]
  - ENCEPHALOPATHY [None]
  - FAECAL INCONTINENCE [None]
  - MYALGIA [None]
  - PYREXIA [None]
  - URINARY INCONTINENCE [None]
